FAERS Safety Report 9252283 (Version 2)
Quarter: 2014Q1

REPORT INFORMATION
  Report Type: Spontaneous
  Country: US (occurrence: US)
  Receive Date: 20130424
  Receipt Date: 20140203
  Transmission Date: 20141002
  Serious: Yes (Hospitalization, Other)
  Sender: FDA-Public Use
  Company Number: US-BAYER-2013-050481

PATIENT
  Age: 36 Year
  Sex: Female

DRUGS (3)
  1. YASMIN [Suspect]
  2. IBUPROFEN [Concomitant]
     Dosage: UNK
     Dates: start: 20000630
  3. CIPRO [Concomitant]
     Dosage: UNK
     Dates: start: 20000630

REACTIONS (10)
  - Gallbladder disorder [None]
  - Cholecystitis acute [None]
  - Heart rate irregular [None]
  - Injury [None]
  - Pain [None]
  - General physical health deterioration [None]
  - Anxiety [None]
  - Emotional distress [None]
  - Anhedonia [None]
  - Pain [None]
